FAERS Safety Report 16082569 (Version 2)
Quarter: 2019Q1

REPORT INFORMATION
  Report Type: Spontaneous
  Country: DE (occurrence: DE)
  Receive Date: 20190318
  Receipt Date: 20190323
  Transmission Date: 20190418
  Serious: Yes (Other)
  Sender: FDA-Public Use
  Company Number: DE-ACCORD-112630

PATIENT
  Age: 81 Year
  Sex: Male

DRUGS (14)
  1. CANDESARTAN. [Suspect]
     Active Substance: CANDESARTAN
     Indication: PRODUCT USED FOR UNKNOWN INDICATION
     Dosage: IN THE MORNING
     Dates: start: 20181009
  2. SIMVASTATIN. [Suspect]
     Active Substance: SIMVASTATIN
     Indication: PRODUCT USED FOR UNKNOWN INDICATION
     Dosage: STRENGTH 40, IN THE EVENING
     Dates: start: 2014
  3. ASPIRIN. [Suspect]
     Active Substance: ASPIRIN
     Indication: PRODUCT USED FOR UNKNOWN INDICATION
     Dosage: STRENGTH 100, IN THE MORNING
     Dates: start: 2014
  4. TORASEMIDE [Suspect]
     Active Substance: TORSEMIDE
     Indication: PRODUCT USED FOR UNKNOWN INDICATION
     Dosage: STRENGTH 20, 20 IN THE MORNING, 20 IN THE EVENING
     Dates: start: 2014
  5. CALCITRIOL. [Concomitant]
     Active Substance: CALCITRIOL
     Dosage: ADMINISTERED IN THE EVENING
     Dates: start: 2014
  6. PANTOPRAZOLE [Suspect]
     Active Substance: PANTOPRAZOLE
     Indication: PROPHYLAXIS AGAINST GASTROINTESTINAL ULCER
     Dosage: STRENGTH 40, AS NEEDED IN THE MORNING
     Dates: start: 2018
  7. ALLOPURINOL. [Suspect]
     Active Substance: ALLOPURINOL
     Indication: PRODUCT USED FOR UNKNOWN INDICATION
     Dosage: STRENGTH 100, IN THE MORNING, ALSO RECEIVED 300MG FROM 2014
     Dates: start: 2018
  8. LANTUS [Suspect]
     Active Substance: INSULIN GLARGINE
     Indication: PRODUCT USED FOR UNKNOWN INDICATION
     Dosage: 24 TO THE NIGHT, ALSO RECEIVED ON 2014
     Dates: start: 2018
  9. TAMSULOSIN/TAMSULOSIN HYDROCHLORIDE [Suspect]
     Active Substance: TAMSULOSIN HYDROCHLORIDE
     Indication: PRODUCT USED FOR UNKNOWN INDICATION
     Dosage: 0.4 IN THE EVENING
     Dates: start: 2014
  10. VALSACOR [Suspect]
     Active Substance: VALSARTAN
     Indication: PRODUCT USED FOR UNKNOWN INDICATION
     Dates: start: 20180903, end: 20181009
  11. VALSARTAN HEXAL [Suspect]
     Active Substance: VALSARTAN
     Dosage: IN THE MORNING
     Dates: start: 2014
  12. AMLODIPINE [Suspect]
     Active Substance: AMLODIPINE BESYLATE
     Indication: PRODUCT USED FOR UNKNOWN INDICATION
     Dosage: STRENGTH 5,IN THE EVENING, ALSO RECEIVED 5MG FROM 2014 (IN THE MORNING AND IN THE EVENING)
     Dates: start: 2018
  13. NOVORAPID [Suspect]
     Active Substance: INSULIN ASPART
     Indication: PRODUCT USED FOR UNKNOWN INDICATION
     Dosage: IN THE MORNING 24, AT NOON 18, IN THE EVENING 20, ALSO RECEIVED FROM 2012,2014
     Dates: start: 2018
  14. NOVAMINSULFON [Suspect]
     Active Substance: METAMIZOLE
     Dosage: IF NECESSARY 2-3X DAILY 20-30 DROPS
     Dates: start: 2014

REACTIONS (12)
  - Skin haemorrhage [Unknown]
  - Peripheral swelling [Unknown]
  - Pelvic pain [Unknown]
  - Dyspnoea [Unknown]
  - Chest discomfort [Unknown]
  - Myalgia [Unknown]
  - Spinal pain [Unknown]
  - Muscle spasms [Unknown]
  - Morning sickness [Unknown]
  - Rectal tenesmus [Unknown]
  - Asthenia [Unknown]
  - Blood glucose increased [Unknown]

NARRATIVE: CASE EVENT DATE: 201809
